FAERS Safety Report 8426192-5 (Version None)
Quarter: 2012Q2

REPORT INFORMATION
  Report Type: 
  Country: None (occurrence: None)
  Receive Date: 20120611
  Receipt Date: 20120601
  Transmission Date: 20120825
  Serious: Yes (Other)
  Sender: FDA-Public Use
  Company Number: ZA-SANOFI-AVENTIS-2012SA033852

PATIENT
  Age: 77 Year
  Sex: Male

DRUGS (8)
  1. BISOPROLOL FUMARATE [Concomitant]
     Route: 048
  2. ASPIRIN [Concomitant]
     Route: 048
  3. AMLODIPINE BESYLATE [Concomitant]
     Route: 048
  4. CLOPIDOGREL [Suspect]
     Indication: ANTICOAGULANT THERAPY
     Route: 048
     Dates: start: 20120301, end: 20120401
  5. SIMVASTATIN [Concomitant]
     Route: 048
  6. LOSARTAN POTASSIUM AND HYDROCHLOROTHIAZIDE [Concomitant]
     Route: 048
  7. CLOPIDOGREL [Suspect]
     Route: 048
     Dates: start: 20120501
  8. CLOPIDOGREL [Suspect]
     Route: 048
     Dates: start: 20120505, end: 20120512

REACTIONS (6)
  - SKIN INFECTION [None]
  - DERMATITIS BULLOUS [None]
  - HAEMATOCHEZIA [None]
  - WOUND INFECTION [None]
  - PAIN [None]
  - DRUG ADMINISTRATION ERROR [None]
